FAERS Safety Report 7796657-8 (Version None)
Quarter: 2011Q3

REPORT INFORMATION
  Report Type: 
  Country: None (occurrence: None)
  Receive Date: 20110930
  Receipt Date: 20110920
  Transmission Date: 20111222
  Serious: Yes (Hospitalization)
  Sender: FDA-Public Use
  Company Number: 20110665

PATIENT
  Age: 45 Year
  Sex: Male

DRUGS (3)
  1. CEFTRIAXONE [Suspect]
  2. LOXOPROFEN [Suspect]
  3. DICLOFENAC SODIUM [Suspect]

REACTIONS (5)
  - BLOOD ALKALINE PHOSPHATASE INCREASED [None]
  - RASH PRURITIC [None]
  - BLISTER [None]
  - ACQUIRED HAEMOPHILIA [None]
  - EPISTAXIS [None]
